FAERS Safety Report 9180164 (Version 1)
Quarter: 2012Q4

REPORT INFORMATION
  Report Type: 
  Country: JP (occurrence: JP)
  Receive Date: 20121029
  Receipt Date: 20121029
  Transmission Date: 20130627
  Serious: Yes (Other)
  Sender: FDA-Public Use
  Company Number: JP-PFIZER INC-2012255172

PATIENT
  Age: 79 Year
  Sex: Female

DRUGS (4)
  1. CABASER [Suspect]
     Dosage: 1 mg, 2x/day
     Route: 048
  2. CILOSTAZOL [Suspect]
     Dosage: UNK
  3. PURSENNID [Suspect]
     Dosage: UNK (at its highest dose)
  4. YOKUKAN-SAN [Suspect]
     Dosage: UNK

REACTIONS (1)
  - Blood potassium decreased [Unknown]
